FAERS Safety Report 7247568-8 (Version None)
Quarter: 2011Q1

REPORT INFORMATION
  Report Type: 
  Country: None (occurrence: None)
  Receive Date: 20110127
  Receipt Date: 20101126
  Transmission Date: 20110831
  Serious: Yes (Death)
  Sender: FDA-Public Use
  Company Number: GB-ROCHE-754478

PATIENT
  Sex: Female

DRUGS (6)
  1. PEGINTERFERON ALFA-2A [Suspect]
     Indication: HEPATITIS C
     Route: 065
  2. VENLAFAXINE [Concomitant]
  3. DIAZEPAM [Concomitant]
  4. METHADONE [Concomitant]
  5. RIBAVIRIN [Suspect]
     Indication: HEPATITIS C
     Route: 065
  6. LEVOTHYROXINE SODIUM [Concomitant]

REACTIONS (2)
  - PNEUMONIA [None]
  - SEPTIC SHOCK [None]
